FAERS Safety Report 10356493 (Version 1)
Quarter: 2014Q3

REPORT INFORMATION
  Report Type: Spontaneous
  Country: KR (occurrence: KR)
  Receive Date: 20140801
  Receipt Date: 20140801
  Transmission Date: 20150326
  Serious: Yes (Hospitalization)
  Sender: FDA-Public Use
  Company Number: KR-BAYER-2014-112393

PATIENT
  Age: 32 Year
  Sex: Female
  Weight: 58.5 kg

DRUGS (3)
  1. SORAFENIB (RAF KINASE INHIBITOR) [Suspect]
     Active Substance: SORAFENIB
     Indication: HAEMANGIOPERICYTOMA
     Dosage: 400 MG, BID
     Route: 048
  2. SORAFENIB (RAF KINASE INHIBITOR) [Suspect]
     Active Substance: SORAFENIB
     Indication: HAEMANGIOPERICYTOMA
     Dosage: UNK
     Route: 048
  3. PREDNISOLONE [PREDNISOLONE] [Concomitant]
     Dosage: 60 MG, QD
     Route: 048

REACTIONS (4)
  - Hypoglycaemia [Recovered/Resolved]
  - Loss of consciousness [None]
  - Mucosal inflammation [None]
  - Off label use [None]

NARRATIVE: CASE EVENT DATE: 2010
